FAERS Safety Report 17715524 (Version 2)
Quarter: 2020Q2

REPORT INFORMATION
  Report Type: Spontaneous
  Country: CH (occurrence: CH)
  Receive Date: 20200427
  Receipt Date: 20200601
  Transmission Date: 20200714
  Serious: Yes (Death, Hospitalization, Other)
  Sender: FDA-Public Use
  Company Number: CH-JNJFOC-20200423913

PATIENT
  Age: 77 Year
  Sex: Male
  Weight: 56 kg

DRUGS (7)
  1. IMODIUM [Suspect]
     Active Substance: LOPERAMIDE HYDROCHLORIDE
     Indication: DIARRHOEA
     Dosage: IMODIUM LING. AKUT 2 MG 4 X/DIE AB 26.03.2020  29.03.2020
     Route: 048
     Dates: start: 20200326, end: 20200329
  2. ONDANSETRON MEPHA                  /00955301/ [Suspect]
     Active Substance: ONDANSETRON
     Indication: ANTIEMETIC SUPPORTIVE CARE
     Dosage: ONDANSETRON MEPHA ORO 4 MG 2- 3 X/DIE AB 27.03.2020 VOR MAHLZEITEN
     Route: 065
     Dates: start: 20200327
  3. BUSCOPAN [Concomitant]
     Active Substance: BUTYLSCOPOLAMINE BROMIDE
     Indication: MUSCLE SPASMS
     Dates: start: 20200326
  4. XELODA [Suspect]
     Active Substance: CAPECITABINE
     Indication: PRODUCT USED FOR UNKNOWN INDICATION
     Dosage: XELODA 1500 MG 2 X/DIE SEIT 18.02.2020 UBER 14 TAGE, GEFOLGT VON EINER 7-TAGIGEN EINNAHMEPAUSE. C...
     Route: 065
     Dates: start: 20200218, end: 20200302
  5. XELODA [Suspect]
     Active Substance: CAPECITABINE
     Dosage: XELODA 1500 MG 2 X/DIE SEIT 18.02.2020 UBER 14 TAGE, GEFOLGT VON EINER 7-TAGIGEN EINNAHMEPAUSE. C...
     Route: 065
     Dates: start: 20200310, end: 20200323
  6. OPIUM TINCTURE [Suspect]
     Active Substance: MORPHINE
     Indication: DIARRHOEA
     Dosage: OPIUMTKT. 1%/10 MG TRPF. 3 X0.5 ML AM 29.03.2020
     Route: 065
     Dates: start: 20200329
  7. FRAGMIN [Concomitant]
     Active Substance: DALTEPARIN SODIUM
     Dates: start: 20200326, end: 20200329

REACTIONS (7)
  - Palmar-plantar erythrodysaesthesia syndrome [Recovered/Resolved]
  - Oesophagitis [Not Recovered/Not Resolved]
  - Pneumatosis intestinalis [Not Recovered/Not Resolved]
  - Death [Fatal]
  - Diarrhoea [Not Recovered/Not Resolved]
  - Cardiac failure acute [Fatal]
  - Ileus paralytic [Not Recovered/Not Resolved]

NARRATIVE: CASE EVENT DATE: 20200318
